FAERS Safety Report 7882447-4 (Version None)
Quarter: 2011Q4

REPORT INFORMATION
  Report Type: 
  Country: None (occurrence: None)
  Receive Date: 20111101
  Receipt Date: 20110615
  Transmission Date: 20120403
  Serious: No
  Sender: FDA-Public Use
  Company Number: US-AMGEN-USASP2010010187

PATIENT
  Age: 62 Year
  Sex: Female
  Weight: 91.61 kg

DRUGS (1)
  1. ENBREL [Suspect]
     Indication: RHEUMATOID ARTHRITIS
     Dosage: 50 MG, QWK
     Dates: start: 20100707, end: 20110411

REACTIONS (6)
  - TONGUE DISCOLOURATION [None]
  - GLOSSODYNIA [None]
  - SINUSITIS [None]
  - BURNING SENSATION [None]
  - STAPHYLOCOCCAL INFECTION [None]
  - INFECTION [None]
